FAERS Safety Report 5381719-5 (Version None)
Quarter: 2007Q3

REPORT INFORMATION
  Report Type: 
  Country: None (occurrence: None)
  Receive Date: 20070709
  Receipt Date: 20070704
  Transmission Date: 20080115
  Serious: Yes (Death, Hospitalization, Other)
  Sender: FDA-Public Use
  Company Number: PHBS2007DK11286

PATIENT
  Age: 48 Year
  Sex: Male

DRUGS (6)
  1. CYCLOSPORINE [Suspect]
     Indication: LUNG TRANSPLANT
     Route: 065
  2. MYCOPHENOLATE MOFETIL [Suspect]
     Indication: LUNG TRANSPLANT
  3. AZATHIOPRINE [Suspect]
     Indication: LUNG TRANSPLANT
     Route: 065
  4. PREDNISOLONE [Suspect]
     Indication: LUNG TRANSPLANT
     Route: 065
  5. ATG SERO [Suspect]
     Indication: LUNG TRANSPLANT
     Dosage: 100 MG/KG, QW
  6. ATG SERO [Suspect]
     Dosage: 200 MG/KG, QW

REACTIONS (18)
  - BRONCHOPULMONARY ASPERGILLOSIS [None]
  - CD4 LYMPHOCYTES DECREASED [None]
  - CD4/CD8 RATIO DECREASED [None]
  - CRYPTOGENIC ORGANISING PNEUMONIA [None]
  - CYTOMEGALOVIRUS INFECTION [None]
  - HYPOGAMMAGLOBULINAEMIA [None]
  - LUNG INFILTRATION [None]
  - LUNG TRANSPLANT REJECTION [None]
  - NEISSERIA INFECTION [None]
  - OBLITERATIVE BRONCHIOLITIS [None]
  - PNEUMONIA STAPHYLOCOCCAL [None]
  - PNEUMONIA STREPTOCOCCAL [None]
  - PULMONARY FIBROSIS [None]
  - PULMONARY FUNCTION TEST DECREASED [None]
  - PULMONARY SEPSIS [None]
  - RESPIRATORY FAILURE [None]
  - WOUND DEBRIDEMENT [None]
  - WOUND INFECTION [None]
